FAERS Safety Report 24429713 (Version 2)
Quarter: 2025Q4

REPORT INFORMATION
  Report Type: Spontaneous
  Country: US (occurrence: US)
  Receive Date: 20241012
  Receipt Date: 20251017
  Transmission Date: 20260118
  Serious: No
  Sender: CELLTRION
  Company Number: US-CELLTRION INC.-2024US018018

PATIENT

DRUGS (1)
  1. INFLECTRA [Suspect]
     Active Substance: INFLIXIMAB-DYYB
     Indication: Crohn^s disease
     Dosage: 100 MG INJECT 50 MLS (500 MG TOTAL) INTO THE VEIN, ONCE EVERY 8 WEEKS
     Route: 042

REACTIONS (1)
  - Unevaluable event [Unknown]
